FAERS Safety Report 10189894 (Version 1)
Quarter: 2014Q2

REPORT INFORMATION
  Report Type: Spontaneous
  Country: US (occurrence: US)
  Receive Date: 20140522
  Receipt Date: 20140522
  Transmission Date: 20141212
  Serious: Yes (Hospitalization)
  Sender: FDA-Public Use
  Company Number: US-SANOFI-AVENTIS-2013SA073689

PATIENT
  Age: 31 Year
  Sex: Female

DRUGS (2)
  1. LANTUS [Suspect]
     Indication: TYPE 1 DIABETES MELLITUS
     Dosage: DOSE:40 UNIT(S)
     Route: 058
  2. NOVOLOG [Concomitant]
     Dosage: SLIDING SCALE
     Route: 065

REACTIONS (1)
  - Hypoglycaemia [Recovered/Resolved]
